FAERS Safety Report 5519476-1 (Version None)
Quarter: 2007Q4

REPORT INFORMATION
  Report Type: 
  Country: None (occurrence: None)
  Receive Date: 20071116
  Receipt Date: 20071105
  Transmission Date: 20080405
  Serious: Yes (Hospitalization)
  Sender: FDA-Public Use
  Company Number: BE-GENENTECH-250791

PATIENT
  Sex: Male

DRUGS (1)
  1. OMALIZUMAB [Suspect]
     Indication: ASTHMA
     Dosage: 150 A?G, 1/MONTH
     Route: 058
     Dates: start: 20070305

REACTIONS (3)
  - LUNG INFECTION [None]
  - PNEUMONIA [None]
  - PULMONARY OEDEMA [None]
